FAERS Safety Report 5744132-4 (Version None)
Quarter: 2008Q2

REPORT INFORMATION
  Report Type: 
  Country: None (occurrence: None)
  Receive Date: 20080520
  Receipt Date: 20080512
  Transmission Date: 20081010
  Serious: Yes (Disabling)
  Sender: FDA-Public Use
  Company Number: B0520210A

PATIENT
  Age: 62 Year
  Sex: Female
  Weight: 77 kg

DRUGS (2)
  1. LAPATINIB [Suspect]
     Dosage: 1250MG PER DAY
     Route: 048
     Dates: start: 20080131
  2. XELODA [Suspect]
     Dosage: 2000MG PER DAY
     Route: 048
     Dates: start: 20080131

REACTIONS (2)
  - CRANIAL NEUROPATHY [None]
  - SKIN ULCER [None]
